FAERS Safety Report 5619174-X (Version None)
Quarter: 2008Q1

REPORT INFORMATION
  Report Type: 
  Country: None (occurrence: None)
  Receive Date: 20080205
  Receipt Date: 20080130
  Transmission Date: 20080703
  Serious: Yes (Other)
  Sender: FDA-Public Use
  Company Number: SPV1-2008-00181

PATIENT

DRUGS (1)
  1. VYVANSE [Suspect]
     Dosage: OVER 2000 MG, ORAL
     Route: 048

REACTIONS (1)
  - INTENTIONAL OVERDOSE [None]
